FAERS Safety Report 12100957 (Version 5)
Quarter: 2016Q2

REPORT INFORMATION
  Report Type: Report from Study
  Country: CA (occurrence: CA)
  Receive Date: 20160222
  Receipt Date: 20160607
  Transmission Date: 20160815
  Serious: Yes (Hospitalization)
  Sender: FDA-Public Use
  Company Number: CA-BIOGEN-2013BI057016

PATIENT
  Age: 48 Year
  Sex: Male
  Weight: 67 kg

DRUGS (10)
  1. FAMVIR [Concomitant]
     Active Substance: FAMCICLOVIR
  2. WARFARIN [Concomitant]
     Active Substance: WARFARIN
     Indication: SUPERIOR SAGITTAL SINUS THROMBOSIS
  3. WARFARIN [Concomitant]
     Active Substance: WARFARIN
     Route: 048
     Dates: start: 20160203, end: 20160203
  4. BACLOFEN. [Concomitant]
     Active Substance: BACLOFEN
  5. DALTEPARIN SODIUM [Concomitant]
     Active Substance: DALTEPARIN SODIUM
     Indication: ANTICOAGULANT THERAPY
     Dates: start: 20130621, end: 20130626
  6. TYSABRI [Suspect]
     Active Substance: NATALIZUMAB
     Indication: MULTIPLE SCLEROSIS
     Route: 042
     Dates: start: 20130311
  7. BACLOFEN. [Concomitant]
     Active Substance: BACLOFEN
  8. FAMPRIDINE [Concomitant]
     Active Substance: DALFAMPRIDINE
     Indication: GAIT DISTURBANCE
     Route: 048
     Dates: start: 20130122
  9. WARFARIN [Concomitant]
     Active Substance: WARFARIN
     Indication: ANTICOAGULANT THERAPY
     Route: 048
     Dates: start: 20130622
  10. WARFARIN [Concomitant]
     Active Substance: WARFARIN

REACTIONS (2)
  - Mass [Unknown]
  - Meningioma [Unknown]

NARRATIVE: CASE EVENT DATE: 20130620
